FAERS Safety Report 5044195-8 (Version None)
Quarter: 2006Q3

REPORT INFORMATION
  Report Type: 
  Country: None (occurrence: None)
  Receive Date: 20060706
  Receipt Date: 20060224
  Transmission Date: 20061208
  Serious: Yes (Disabling)
  Sender: FDA-Public Use
  Company Number: US-ROCHE-438218

PATIENT
  Age: 28 Year
  Sex: Male
  Weight: 81.6 kg

DRUGS (1)
  1. ACCUTANE [Suspect]
     Indication: ACNE
     Route: 048
     Dates: start: 20030212, end: 20030803

REACTIONS (6)
  - EMOTIONAL DISORDER [None]
  - GASTROINTESTINAL DISORDER [None]
  - INFLAMMATORY BOWEL DISEASE [None]
  - INJURY [None]
  - INTERNAL INJURY [None]
  - IRRITABLE BOWEL SYNDROME [None]
